FAERS Safety Report 5750907-8 (Version None)
Quarter: 2008Q2

REPORT INFORMATION
  Report Type: 
  Country: None (occurrence: None)
  Receive Date: 20080528
  Receipt Date: 20080516
  Transmission Date: 20081010
  Serious: Yes (Hospitalization)
  Sender: FDA-Public Use
  Company Number: DE-ROCHE-565067

PATIENT
  Age: 71 Year
  Weight: 82 kg

DRUGS (6)
  1. XELODA [Suspect]
     Indication: DRUG USE FOR UNKNOWN INDICATION
     Route: 065
     Dates: start: 20080418, end: 20080501
  2. PHENPROCOUMON [Suspect]
     Indication: DRUG USE FOR UNKNOWN INDICATION
     Route: 065
  3. MIRTAZAPINE [Concomitant]
  4. GABAPENTIN [Concomitant]
  5. LIORESAL [Concomitant]
  6. MACROGOL [Concomitant]

REACTIONS (2)
  - HAEMATURIA [None]
  - OVERDOSE [None]
